FAERS Safety Report 18815824 (Version 1)
Quarter: 2021Q1

REPORT INFORMATION
  Report Type: Spontaneous
  Country: US (occurrence: US)
  Receive Date: 20210129
  Receipt Date: 20210129
  Transmission Date: 20210419
  Serious: Yes (Death)
  Sender: FDA-Public Use
  Company Number: None

PATIENT
  Age: 77 Year
  Sex: Male

DRUGS (1)
  1. POMALYST [Suspect]
     Active Substance: POMALIDOMIDE
     Indication: PLASMA CELL MYELOMA
     Route: 048
     Dates: start: 20201218, end: 20210102

REACTIONS (10)
  - Acute kidney injury [None]
  - Hyperkalaemia [None]
  - Septic shock [None]
  - Continuous haemodiafiltration [None]
  - Toxic encephalopathy [None]
  - Azotaemia [None]
  - Multiple organ dysfunction syndrome [None]
  - Thrombocytopenia [None]
  - Urinary retention [None]
  - Cardiac arrest [None]

NARRATIVE: CASE EVENT DATE: 20210102
